FAERS Safety Report 9153372 (Version 2)
Quarter: 2013Q2

REPORT INFORMATION
  Report Type: Spontaneous
  Country: MA (occurrence: MA)
  Receive Date: 20130311
  Receipt Date: 20130423
  Transmission Date: 20140414
  Serious: Yes (Death, Hospitalization)
  Sender: FDA-Public Use
  Company Number: MA-JNJFOC-20130300352

PATIENT
  Age: 75 Year
  Sex: Male

DRUGS (2)
  1. ABIRATERONE ACETATE [Suspect]
     Indication: PROSTATE CANCER METASTATIC
     Dosage: 250 MG X 4 = 1000 MG
     Route: 048
     Dates: start: 20121105, end: 201301
  2. ZOMETA [Concomitant]
     Indication: METASTASES TO BONE
     Route: 042

REACTIONS (3)
  - Disease progression [Fatal]
  - Oedema [Unknown]
  - Generalised oedema [Unknown]
